FAERS Safety Report 8487077-1 (Version None)
Quarter: 2012Q3

REPORT INFORMATION
  Report Type: 
  Country: None (occurrence: None)
  Receive Date: 20120704
  Receipt Date: 20120702
  Transmission Date: 20120928
  Serious: Yes (Hospitalization, Other)
  Sender: FDA-Public Use
  Company Number: PHEH2010US03493

PATIENT
  Sex: Female

DRUGS (11)
  1. MELPHALAN HYDROCHLORIDE [Concomitant]
  2. ASPIRIN [Concomitant]
     Dosage: 325 MG, QD
     Route: 048
  3. COZAAR [Concomitant]
  4. ACETAMINOPHEN [Concomitant]
  5. PREDNISONE [Concomitant]
  6. ATENOLOL [Concomitant]
  7. ZOMETA [Suspect]
     Indication: MULTIPLE MYELOMA
     Dosage: 4 MG, QMO
     Route: 042
     Dates: start: 20020101, end: 20050101
  8. HYDROCHLOROTHIAZIDE [Concomitant]
  9. AMOXIL [Concomitant]
     Dosage: 500 MG, TID
     Route: 048
  10. IBUPROFEN [Concomitant]
  11. LISINOPRIL [Concomitant]
     Dosage: 40 MG, QD
     Route: 048

REACTIONS (66)
  - OSTEITIS [None]
  - EXPOSED BONE IN JAW [None]
  - MENINGIOMA [None]
  - ATROPHIC VULVOVAGINITIS [None]
  - URINARY INCONTINENCE [None]
  - FALL [None]
  - OSTEOPOROSIS [None]
  - KLIPPEL-FEIL SYNDROME [None]
  - GENITAL DISCOMFORT [None]
  - CHEST PAIN [None]
  - HYPERGLYCAEMIA [None]
  - OSTEONECROSIS OF JAW [None]
  - DISABILITY [None]
  - TOOTH ABSCESS [None]
  - AMNESIA [None]
  - LACUNAR INFARCTION [None]
  - CERVICAL MYELOPATHY [None]
  - OEDEMA PERIPHERAL [None]
  - MUSCULOSKELETAL PAIN [None]
  - PALPITATIONS [None]
  - HYPOAESTHESIA [None]
  - OSTEOARTHRITIS [None]
  - CATARACT CORTICAL [None]
  - ASTHENIA [None]
  - BACK PAIN [None]
  - PEPTIC ULCER [None]
  - CEREBRAL ARTERY THROMBOSIS [None]
  - AORTIC VALVE INCOMPETENCE [None]
  - NAUSEA [None]
  - VOMITING [None]
  - ANHEDONIA [None]
  - SPINAL COLUMN STENOSIS [None]
  - MYOCARDIAL INFARCTION [None]
  - ARTHRALGIA [None]
  - TRANSIENT ISCHAEMIC ATTACK [None]
  - PAIN [None]
  - OVERGROWTH BACTERIAL [None]
  - CEREBRAL CALCIFICATION [None]
  - SPINAL OSTEOARTHRITIS [None]
  - DEAFNESS [None]
  - HEADACHE [None]
  - PRIMARY SEQUESTRUM [None]
  - MIXED INCONTINENCE [None]
  - CEREBELLAR ATROPHY [None]
  - VISION BLURRED [None]
  - INJURY [None]
  - INTERVERTEBRAL DISC PROTRUSION [None]
  - VERTIGO [None]
  - EXOSTOSIS [None]
  - ENCEPHALOPATHY [None]
  - BUNDLE BRANCH BLOCK RIGHT [None]
  - ANXIETY [None]
  - NERVE ROOT LESION [None]
  - MACULAR DEGENERATION [None]
  - GASTROOESOPHAGEAL REFLUX DISEASE [None]
  - TOOTH FRACTURE [None]
  - POST LAMINECTOMY SYNDROME [None]
  - HYPERKALAEMIA [None]
  - PARAESTHESIA [None]
  - GAIT DISTURBANCE [None]
  - SWELLING [None]
  - SPONDYLOLISTHESIS [None]
  - OBESITY [None]
  - CEREBRAL ATROPHY [None]
  - NORMOCHROMIC NORMOCYTIC ANAEMIA [None]
  - OSTEONECROSIS [None]
